FAERS Safety Report 23199482 (Version 1)
Quarter: 2023Q4

REPORT INFORMATION
  Report Type: Spontaneous
  Country: US (occurrence: US)
  Receive Date: 20231117
  Receipt Date: 20231117
  Transmission Date: 20240109
  Serious: No
  Sender: FDA-Public Use
  Company Number: US-Stemline Therapeutics, Inc.-2023ST002263

PATIENT
  Age: 64 Year
  Sex: Female

DRUGS (1)
  1. ORSERDU [Suspect]
     Active Substance: ELACESTRANT
     Indication: Product used for unknown indication
     Dosage: 345 MG, ONCE A DAY
     Route: 048
     Dates: start: 20230505

REACTIONS (12)
  - Burning sensation [Unknown]
  - Burning sensation [Unknown]
  - Musculoskeletal chest pain [Unknown]
  - Back pain [Recovered/Resolved]
  - Neuralgia [Recovered/Resolved]
  - Radiation skin injury [Unknown]
  - Pain [Unknown]
  - Abdominal pain [Unknown]
  - Hot flush [Not Recovered/Not Resolved]
  - Dizziness [Unknown]
  - Nausea [Unknown]
  - Decreased appetite [Unknown]
